FAERS Safety Report 4526381-6 (Version None)
Quarter: 2004Q4

REPORT INFORMATION
  Report Type: 
  Country: None (occurrence: None)
  Receive Date: 20041210
  Receipt Date: 20041129
  Transmission Date: 20050328
  Serious: Yes (Hospitalization)
  Sender: FDA-Public Use
  Company Number: HQWYE529820APR04

PATIENT
  Age: 46 Year
  Sex: Female

DRUGS (15)
  1. RAPAMUNE [Suspect]
     Indication: PROPHYLAXIS AGAINST TRANSPLANT REJECTION
     Dosage: 6 MG 1X PER 1 DAY ORAL
     Route: 048
     Dates: start: 20040130
  2. RAPAMUNE [Suspect]
  3. CONJUGATED ESTROGENS [Suspect]
     Indication: HORMONE REPLACEMENT THERAPY
     Dosage: 0.625 MG 1X PER 1 DAY ORAL
     Route: 048
     Dates: start: 20040112, end: 20040723
  4. MEDROXYPROGESTERONE ACETATE [Suspect]
     Indication: HORMONE REPLACEMENT THERAPY
     Dosage: 5 MG 1X PER 1 DAY ORAL
     Route: 048
     Dates: start: 20040112, end: 20040723
  5. ACETAMINOPHEN [Concomitant]
  6. KETOCONAZOLE [Concomitant]
  7. NIFEDIPINE [Concomitant]
  8. ATENOLOL [Concomitant]
  9. RANITIDINE [Concomitant]
  10. MYCOPHENOLATE MOFETIL (MYCOPHENOLATE MOFETIL) [Concomitant]
  11. PREDNISONE [Concomitant]
  12. ACETAMINOPHEN W/ CODEINE [Concomitant]
  13. SIMVASTATIN [Concomitant]
  14. TRIAMCINOLONE ACETONIDE [Concomitant]
  15. TRIAMCINOLONE ACETONIDE [Concomitant]

REACTIONS (4)
  - CONDITION AGGRAVATED [None]
  - DEEP VEIN THROMBOSIS [None]
  - THROMBOPHLEBITIS SUPERFICIAL [None]
  - VENOUS THROMBOSIS LIMB [None]
